FAERS Safety Report 4437252-8 (Version None)
Quarter: 2004Q3

REPORT INFORMATION
  Report Type: 
  Country: None (occurrence: None)
  Receive Date: 20040728
  Receipt Date: 20040405
  Transmission Date: 20050211
  Serious: No
  Sender: FDA-Public Use
  Company Number: WAES 0404USA00257

PATIENT
  Age: 38 Year
  Sex: Male
  Weight: 109.7705 kg

DRUGS (8)
  1. EMEND [Suspect]
     Indication: PROPHYLAXIS
     Dosage: 125 MG/1X/PO; SEE IMAGE
     Route: 048
     Dates: start: 20040302, end: 20040302
  2. EMEND [Suspect]
     Indication: PROPHYLAXIS
     Dosage: 125 MG/1X/PO; SEE IMAGE
     Route: 048
     Dates: start: 20040303, end: 20040303
  3. CYTARABINE [Concomitant]
     Indication: PROPHYLACTIC CHEMOTHERAPY
  4. ATIVAN [Concomitant]
  5. KYTRIL [Concomitant]
  6. SOLU-MEDROL [Concomitant]
  7. CISPLATIN [Concomitant]
  8. ETOPOSIDE [Concomitant]

REACTIONS (6)
  - ABDOMINAL PAIN [None]
  - ASTHENIA [None]
  - FALL [None]
  - MUSCLE CRAMP [None]
  - PAIN IN EXTREMITY [None]
  - RESTLESSNESS [None]
